FAERS Safety Report 9115754 (Version 1)
Quarter: 2013Q1

REPORT INFORMATION
  Report Type: Spontaneous
  Country: US (occurrence: US)
  Receive Date: 20130225
  Receipt Date: 20130225
  Transmission Date: 20140127
  Serious: Yes (Other)
  Sender: FDA-Public Use
  Company Number: US-BAYER-2013-022629

PATIENT
  Sex: 0

DRUGS (4)
  1. BETASERON [Suspect]
  2. AVONEX [Suspect]
  3. REBIF [Suspect]
  4. COPAXONE [Suspect]

REACTIONS (2)
  - Multiple sclerosis [None]
  - Adverse drug reaction [None]
